FAERS Safety Report 7197051-3 (Version None)
Quarter: 2010Q4

REPORT INFORMATION
  Report Type: 
  Country: None (occurrence: None)
  Receive Date: 20101224
  Receipt Date: 20101221
  Transmission Date: 20110411
  Serious: Yes (Death, Hospitalization)
  Sender: FDA-Public Use
  Company Number: PHFR2010GB01079

PATIENT
  Sex: Male

DRUGS (2)
  1. CLOZARIL [Suspect]
     Indication: SCHIZOPHRENIA
     Dosage: 450 MG, QD
     Route: 048
     Dates: start: 20080819
  2. CLOZARIL [Suspect]
     Dosage: 250 MG, UNK
     Route: 048

REACTIONS (7)
  - GENERAL PHYSICAL CONDITION ABNORMAL [None]
  - HAEMOGLOBIN DECREASED [None]
  - LARYNGEAL CANCER [None]
  - LUNG ADENOCARCINOMA [None]
  - MALAISE [None]
  - PLATELET COUNT DECREASED [None]
  - PULMONARY OEDEMA [None]
